FAERS Safety Report 16187286 (Version 3)
Quarter: 2019Q2

REPORT INFORMATION
  Report Type: Report from Study
  Country: None (occurrence: US)
  Receive Date: 20190412
  Receipt Date: 20190617
  Transmission Date: 20190711
  Serious: Yes (Other)
  Sender: FDA-Public Use
  Company Number: US-ABBVIE-19K-163-2739789-00

PATIENT
  Age: 49 Year
  Sex: Female

DRUGS (2)
  1. HUMIRA [Suspect]
     Active Substance: ADALIMUMAB
     Indication: COLITIS ULCERATIVE
  2. HUMIRA [Suspect]
     Active Substance: ADALIMUMAB
     Indication: CROHN^S DISEASE
     Route: 058
     Dates: start: 20190116

REACTIONS (6)
  - Thrombosis [Unknown]
  - Unevaluable event [Unknown]
  - Haemorrhage [Unknown]
  - Contusion [Unknown]
  - Arterial bypass occlusion [Unknown]
  - Asthenia [Unknown]

NARRATIVE: CASE EVENT DATE: 2019
